FAERS Safety Report 25059243 (Version 1)
Quarter: 2025Q1

REPORT INFORMATION
  Report Type: Spontaneous
  Country: CA (occurrence: CA)
  Receive Date: 20250310
  Receipt Date: 20250310
  Transmission Date: 20250409
  Serious: Yes (Hospitalization)
  Sender: GALDERMA
  Company Number: CA-GALDERMA-CA2025002919

PATIENT

DRUGS (2)
  1. IVERMECTIN [Suspect]
     Active Substance: IVERMECTIN
     Indication: Perioral dermatitis
     Route: 061
     Dates: start: 2025
  2. IVERMECTIN [Suspect]
     Active Substance: IVERMECTIN
     Route: 061
     Dates: start: 2025

REACTIONS (8)
  - Blood pressure increased [Unknown]
  - Pyrexia [Unknown]
  - Pain [Unknown]
  - Hypersensitivity [Not Recovered/Not Resolved]
  - Skin burning sensation [Unknown]
  - Rash [Unknown]
  - Feeling abnormal [Unknown]
  - Intentional product use issue [Recovered/Resolved]

NARRATIVE: CASE EVENT DATE: 20250101
